FAERS Safety Report 13417693 (Version 1)
Quarter: 2017Q2

REPORT INFORMATION
  Report Type: Spontaneous
  Country: NZ (occurrence: NZ)
  Receive Date: 20170407
  Receipt Date: 20170407
  Transmission Date: 20170830
  Serious: Yes (Other)
  Sender: FDA-Public Use
  Company Number: NZ-IMPAX LABORATORIES, INC-2017-IPXL-00855

PATIENT
  Age: 24 Year
  Sex: Female

DRUGS (2)
  1. LAMOTRIGINE ODT [Suspect]
     Active Substance: LAMOTRIGINE
     Indication: SEIZURE
     Dosage: UNK
     Route: 065
  2. LAMOTRIGINE ODT [Suspect]
     Active Substance: LAMOTRIGINE
     Dosage: TITRATED TO A 150 MG IN THE MORNING AND 200 MG IN THE EVENING
     Route: 065

REACTIONS (3)
  - Computerised tomogram thorax abnormal [Recovered/Resolved]
  - Pseudolymphoma [Recovered/Resolved]
  - Productive cough [Recovered/Resolved]
